FAERS Safety Report 10548021 (Version 1)
Quarter: 2014Q4

REPORT INFORMATION
  Report Type: Spontaneous
  Country: US (occurrence: None)
  Receive Date: 20141027
  Receipt Date: 20141027
  Transmission Date: 20150529
  Serious: Yes (Other)
  Sender: FDA-Public Use
  Company Number: None

PATIENT
  Age: 68 Year
  Sex: Male
  Weight: 63.2 kg

DRUGS (13)
  1. ULTRAM [Concomitant]
     Active Substance: TRAMADOL HYDROCHLORIDE
  2. LOSARTAN [Concomitant]
     Active Substance: LOSARTAN
  3. VITAMIN C [Concomitant]
     Active Substance: ASCORBIC ACID
  4. CARAFATE [Concomitant]
     Active Substance: SUCRALFATE
  5. CALCIUM [Concomitant]
     Active Substance: CALCIUM
  6. NORVASC [Concomitant]
     Active Substance: AMLODIPINE BESYLATE
  7. BENADRYL [Concomitant]
     Active Substance: DIPHENHYDRAMINE HYDROCHLORIDE
  8. PEPTOTAB [Concomitant]
  9. CYCLOSPORINE. [Concomitant]
     Active Substance: CYCLOSPORINE
  10. EXJADE [Suspect]
     Active Substance: DEFERASIROX
     Indication: IRON OVERLOAD
     Route: 048
     Dates: start: 20141006
  11. MULTI VIT. [Concomitant]
  12. EXJADE [Suspect]
     Active Substance: DEFERASIROX
     Route: 048
  13. TYLENOL [Concomitant]
     Active Substance: ACETAMINOPHEN

REACTIONS (1)
  - Eye irritation [None]

NARRATIVE: CASE EVENT DATE: 201410
